FAERS Safety Report 10179227 (Version 1)
Quarter: 2014Q2

REPORT INFORMATION
  Report Type: Spontaneous
  Country: US (occurrence: US)
  Receive Date: 20140519
  Receipt Date: 20140519
  Transmission Date: 20141212
  Serious: Yes (Other)
  Sender: FDA-Public Use
  Company Number: US-PFIZER INC-2014134232

PATIENT
  Sex: Female

DRUGS (1)
  1. CELEBREX [Suspect]
     Dosage: 400 MG

REACTIONS (4)
  - Thrombosis [Unknown]
  - Chronic obstructive pulmonary disease [Unknown]
  - Stomatitis [Recovering/Resolving]
  - Asthma [Unknown]
